FAERS Safety Report 8581729-0 (Version None)
Quarter: 2012Q3

REPORT INFORMATION
  Report Type: 
  Country: None (occurrence: None)
  Receive Date: 20120809
  Receipt Date: 20120803
  Transmission Date: 20120928
  Serious: Yes (Death, Hospitalization)
  Sender: FDA-Public Use
  Company Number: GR-PFIZER INC-2012188973

PATIENT
  Sex: Male

DRUGS (3)
  1. BLEOMYCIN [Suspect]
     Indication: TESTIS CANCER
     Dosage: 30 MG, FOR 3 DAYS
     Route: 042
  2. CISPLATIN [Suspect]
     Indication: TESTIS CANCER
     Dosage: 50 MG/M2, DAYS 1 AND 2
     Route: 042
  3. ETOPOSIDE [Suspect]
     Indication: TESTIS CANCER
     Dosage: 165 MG/M2, DAYS 1-3
     Route: 042

REACTIONS (7)
  - HAEMOPTYSIS [None]
  - HAEMORRHAGE [None]
  - PANCYTOPENIA [None]
  - PYREXIA [None]
  - PULMONARY TOXICITY [None]
  - BONE MARROW TOXICITY [None]
  - DYSPNOEA [None]
